FAERS Safety Report 8218066-X (Version None)
Quarter: 2012Q1

REPORT INFORMATION
  Report Type: 
  Country: None (occurrence: None)
  Receive Date: 20120319
  Receipt Date: 20120313
  Transmission Date: 20120608
  Serious: Yes (Other)
  Sender: FDA-Public Use
  Company Number: BR-PFIZER INC-2012066890

PATIENT
  Age: 57 Year
  Sex: Female

DRUGS (4)
  1. DIAMICRON [Concomitant]
     Indication: BLOOD PRESSURE INCREASED
     Dosage: UNK
  2. METICORTEN [Concomitant]
     Indication: RHEUMATOID ARTHRITIS
     Dosage: UNK
  3. XALATAN [Suspect]
     Indication: MYOPIA
     Dosage: 1.5 UG (ON DROP IN THE LEFT EYE) ONCE A DAY
     Route: 047
  4. LEVOTHYROXINE SODIUM [Concomitant]
     Indication: HYPOTHYROIDISM
     Dosage: UNK

REACTIONS (6)
  - MYOPIA [None]
  - ASTIGMATISM [None]
  - EYE IRRITATION [None]
  - BLINDNESS [None]
  - GLAUCOMA [None]
  - ULCER [None]
